FAERS Safety Report 8803422 (Version 1)
Quarter: 2012Q4

REPORT INFORMATION
  Report Type: 
  Country: US (occurrence: US)
  Receive Date: 20120924
  Receipt Date: 20120924
  Transmission Date: 20130627
  Serious: No
  Sender: FDA-Public Use
  Company Number: US-009507513-1209USA005857

PATIENT
  Sex: Female

DRUGS (1)
  1. CLARITIN [Suspect]

REACTIONS (2)
  - Adverse event [Unknown]
  - No therapeutic response [Unknown]
